FAERS Safety Report 9689060 (Version 1)
Quarter: 2013Q4

REPORT INFORMATION
  Report Type: Spontaneous
  Country: IN (occurrence: None)
  Receive Date: 20131112
  Receipt Date: 20131112
  Transmission Date: 20140711
  Serious: Yes (Other)
  Sender: FDA-Public Use
  Company Number: FK201304858

PATIENT
  Age: 47 Year
  Sex: Female

DRUGS (2)
  1. VALPROATE [Suspect]
     Indication: EPILEPSY
     Dosage: 300MG, 1 IN 1 D
  2. LAMOTRIGINE [Suspect]
     Indication: EPILEPSY
     Dosage: 50MG 2 IN 1 D

REACTIONS (2)
  - Toxic epidermal necrolysis [None]
  - Drug interaction [None]
